FAERS Safety Report 24130699 (Version 1)
Quarter: 2024Q3

REPORT INFORMATION
  Report Type: Report from Study
  Country: CH (occurrence: CH)
  Receive Date: 20240724
  Receipt Date: 20240724
  Transmission Date: 20241017
  Serious: Yes (Hospitalization, Other)
  Sender: ABBVIE
  Company Number: CH-ABBVIE-5849786

PATIENT
  Age: 87 Year
  Sex: Male

DRUGS (3)
  1. CARBIDOPA\LEVODOPA [Suspect]
     Active Substance: CARBIDOPA\LEVODOPA
     Indication: Parkinson^s disease
     Dosage: MD: 3ML, CRD: 2.2 ML/H, ED: 1 ML
     Route: 050
     Dates: start: 20240208
  2. CARBIDOPA\LEVODOPA [Suspect]
     Active Substance: CARBIDOPA\LEVODOPA
     Dosage: FREQUENCY TEXT: 16H THERAPY
     Route: 050
     Dates: start: 20220907
  3. CARBIDOPA\LEVODOPA [Suspect]
     Active Substance: CARBIDOPA\LEVODOPA
     Dosage: MD: 3ML, CRD: 1.9 ML/H, ED: 1 ML?FREQUENCY TEXT: 16H THERAPY
     Route: 050
     Dates: start: 20230901, end: 20240208

REACTIONS (3)
  - Loss of consciousness [Recovering/Resolving]
  - Coronary artery surgery [Recovering/Resolving]
  - Coronary artery surgery [Recovering/Resolving]

NARRATIVE: CASE EVENT DATE: 20240714
